FAERS Safety Report 4825489-5 (Version None)
Quarter: 2005Q4

REPORT INFORMATION
  Report Type: 
  Country: None (occurrence: None)
  Receive Date: 20051111
  Receipt Date: 20041129
  Transmission Date: 20060501
  Serious: Yes (Hospitalization)
  Sender: FDA-Public Use
  Company Number: US-GLAXOSMITHKLINE-A0535384A

PATIENT
  Age: 37 Year
  Sex: Male

DRUGS (4)
  1. TRIZIVIR [Suspect]
     Indication: HIV INFECTION
     Route: 048
     Dates: start: 20041011
  2. FLU SHOT [Concomitant]
  3. TWINRIX [Concomitant]
  4. SUSTIVA [Concomitant]

REACTIONS (1)
  - RASH [None]
